FAERS Safety Report 7003059-0 (Version None)
Quarter: 2010Q3

REPORT INFORMATION
  Report Type: 
  Country: None (occurrence: None)
  Receive Date: 20100920
  Receipt Date: 20090915
  Transmission Date: 20110219
  Serious: No
  Sender: FDA-Public Use
  Company Number: US-ASTRAZENECA-2009SE13206

PATIENT
  Age: 17 Year
  Sex: Male
  Weight: 101.6 kg

DRUGS (8)
  1. SEROQUEL [Suspect]
     Indication: HALLUCINATION
     Route: 048
     Dates: start: 20090701
  2. SEROQUEL [Suspect]
     Route: 048
     Dates: start: 20090801
  3. SEROQUEL [Suspect]
     Route: 048
     Dates: start: 20090801
  4. SEROQUEL [Suspect]
     Route: 048
  5. LORTAB [Concomitant]
     Indication: PAIN
  6. LISINOPRIL [Concomitant]
  7. ATENOLOL [Concomitant]
  8. TRILEPTAL [Concomitant]

REACTIONS (2)
  - CEREBRAL VENTRICLE DILATATION [None]
  - MIGRAINE [None]
